FAERS Safety Report 13054210 (Version 1)
Quarter: 2016Q4

REPORT INFORMATION
  Report Type: Spontaneous
  Country: US (occurrence: US)
  Receive Date: 20161222
  Receipt Date: 20161222
  Transmission Date: 20170207
  Serious: Yes (Hospitalization)
  Sender: FDA-Public Use
  Company Number: US-FRESENIUS MEDICAL CARE RENAL THERAPIES GROUP-FMC-1611-001251

PATIENT
  Age: 61 Year
  Sex: Female

DRUGS (1)
  1. DELFLEX WITH DEXTROSE 1.5% LOW MAGNESIUM LOW CALCIUM [Suspect]
     Active Substance: CALCIUM CHLORIDE\DEXTROSE\MAGNESIUM CHLORIDE\SODIUM CHLORIDE\SODIUM LACTATE
     Indication: END STAGE RENAL DISEASE
     Route: 033

REACTIONS (8)
  - Vomiting [None]
  - Small intestinal obstruction [None]
  - Peritonitis [Recovering/Resolving]
  - Ileus [Recovering/Resolving]
  - Nausea [None]
  - Rash [None]
  - Abdominal pain [None]
  - Cutaneous lupus erythematosus [None]

NARRATIVE: CASE EVENT DATE: 201609
